FAERS Safety Report 13243119 (Version 1)
Quarter: 2017Q1

REPORT INFORMATION
  Report Type: Spontaneous
  Country: US (occurrence: US)
  Receive Date: 20170216
  Receipt Date: 20170216
  Transmission Date: 20170428
  Serious: No
  Sender: FDA-Public Use
  Company Number: None

PATIENT
  Sex: Male

DRUGS (2)
  1. ESTROGENS [Suspect]
     Active Substance: ESTROGENS
  2. ACYCLOVIR. [Suspect]
     Active Substance: ACYCLOVIR

REACTIONS (1)
  - Product commingling [None]

NARRATIVE: CASE EVENT DATE: 2016
